FAERS Safety Report 11559300 (Version 1)
Quarter: 2015Q3

REPORT INFORMATION
  Report Type: Spontaneous
  Country: IT (occurrence: IT)
  Receive Date: 20150928
  Receipt Date: 20150928
  Transmission Date: 20151125
  Serious: Yes (Hospitalization)
  Sender: FDA-Public Use
  Company Number: PHHY2015IT115451

PATIENT
  Age: 35 Year
  Sex: Male

DRUGS (2)
  1. CLAVULIN [Suspect]
     Active Substance: AMOXICILLIN\CLAVULANIC ACID
     Indication: TOOTHACHE
     Dosage: 1 POSOLOGIC UNIT
     Route: 048
     Dates: start: 20150918, end: 20150918
  2. VOLTFAST [Suspect]
     Active Substance: DICLOFENAC POTASSIUM
     Indication: TOOTHACHE
     Dosage: 1 POSOLOGIC UNIT IN TOTAL
     Route: 048
     Dates: start: 20150918, end: 20150918

REACTIONS (3)
  - Malaise [Recovering/Resolving]
  - Band sensation [Recovering/Resolving]
  - Chills [Recovering/Resolving]

NARRATIVE: CASE EVENT DATE: 20150918
